FAERS Safety Report 16292589 (Version 1)
Quarter: 2019Q2

REPORT INFORMATION
  Report Type: Spontaneous
  Country: JP (occurrence: JP)
  Receive Date: 20190509
  Receipt Date: 20190509
  Transmission Date: 20190711
  Serious: No
  Sender: FDA-Public Use
  Company Number: JP-LUNDBECK-DKLU2052043

PATIENT
  Age: 13 Month
  Sex: Male

DRUGS (9)
  1. SABRIL [Suspect]
     Active Substance: VIGABATRIN
     Dosage: 70MG/KG/DAY
     Route: 048
     Dates: start: 20171106, end: 20171109
  2. SABRIL [Suspect]
     Active Substance: VIGABATRIN
     Route: 048
     Dates: start: 20171110, end: 20171203
  3. VALPROATE SODIUM. [Concomitant]
     Active Substance: VALPROATE SODIUM
     Indication: INFANTILE SPASMS
     Route: 065
     Dates: start: 20171204
  4. ATROPINE SULFATE. [Concomitant]
     Active Substance: ATROPINE SULFATE
     Indication: PROPHYLAXIS
     Route: 065
     Dates: start: 20171115, end: 20171115
  5. POTASSIUM IODIDE. [Concomitant]
     Active Substance: POTASSIUM IODIDE
     Indication: PROPHYLAXIS
     Route: 065
     Dates: start: 20171113, end: 20171116
  6. ZONISAMIDE. [Concomitant]
     Active Substance: ZONISAMIDE
     Indication: INFANTILE SPASMS
     Route: 065
     Dates: end: 20171102
  7. RAVONAL [Concomitant]
     Active Substance: THIOPENTAL
     Indication: PROPHYLAXIS
     Route: 065
     Dates: start: 20171115, end: 20171115
  8. SABRIL [Suspect]
     Active Substance: VIGABATRIN
     Indication: INFANTILE SPASMS
     Route: 048
     Dates: start: 20171026, end: 20171105
  9. SABRIL [Suspect]
     Active Substance: VIGABATRIN
     Route: 048
     Dates: start: 20171204, end: 20171211

REACTIONS (3)
  - Drug ineffective [Unknown]
  - Somnolence [Recovered/Resolved]
  - Secretion discharge [Recovering/Resolving]

NARRATIVE: CASE EVENT DATE: 20171108
